FAERS Safety Report 6782273-3 (Version None)
Quarter: 2010Q2

REPORT INFORMATION
  Report Type: 
  Country: None (occurrence: None)
  Receive Date: 20100621
  Receipt Date: 20100611
  Transmission Date: 20101027
  Serious: Yes (Other)
  Sender: FDA-Public Use
  Company Number: US-JNJCH-2010011495

PATIENT
  Age: 1 Year
  Sex: Male
  Weight: 12.2 kg

DRUGS (2)
  1. BENADRYL [Suspect]
     Indication: ABSCESS
     Dosage: TEXT:ONE TEASPOONFUL EVERY 4-6 HOURS
     Route: 048
     Dates: start: 20100401, end: 20100507
  2. CHILDREN'S TYLENOL SUSPENSION [Suspect]
     Indication: ABSCESS
     Dosage: TEXT:ONE TEASPOONFUL EVERY 4-6 HOURS
     Route: 048
     Dates: start: 20100401, end: 20100507

REACTIONS (8)
  - HAND-FOOT-AND-MOUTH DISEASE [None]
  - IMMUNE SYSTEM DISORDER [None]
  - OFF LABEL USE [None]
  - PRODUCT QUALITY ISSUE [None]
  - RASH [None]
  - STAPHYLOCOCCAL INFECTION [None]
  - URTICARIA [None]
  - WRONG DRUG ADMINISTERED [None]
